FAERS Safety Report 14877185 (Version 1)
Quarter: 2018Q2

REPORT INFORMATION
  Report Type: Report from Study
  Country: GB (occurrence: GB)
  Receive Date: 20180510
  Receipt Date: 20180510
  Transmission Date: 20180711
  Serious: Yes (Life-Threatening, Other)
  Sender: FDA-Public Use
  Company Number: GB-TAKEDA-2018MPI005086

PATIENT

DRUGS (1)
  1. IXAZOMIB [Suspect]
     Active Substance: IXAZOMIB
     Indication: PRODUCT USED FOR UNKNOWN INDICATION
     Dosage: UNK
     Route: 065

REACTIONS (6)
  - Rash [Unknown]
  - Nausea [Unknown]
  - Sepsis [Unknown]
  - Vomiting [Unknown]
  - Full blood count decreased [Unknown]
  - Fatigue [Unknown]
